FAERS Safety Report 10551322 (Version 2)
Quarter: 2014Q4

REPORT INFORMATION
  Report Type: Report from Study
  Country: US (occurrence: US)
  Receive Date: 20141029
  Receipt Date: 20141202
  Transmission Date: 20150529
  Serious: Yes (Death, Other)
  Sender: FDA-Public Use
  Company Number: US-AMGEN-USASL2014082073

PATIENT
  Age: 71 Year
  Sex: Female
  Weight: 45.08 kg

DRUGS (1)
  1. PROLIA [Suspect]
     Active Substance: DENOSUMAB
     Indication: OSTEOPOROSIS
     Dosage: 60 MG, Q6MO
     Route: 058
     Dates: start: 20130827

REACTIONS (12)
  - Hypercalcaemia [Unknown]
  - Laboratory test abnormal [Unknown]
  - Pancreatic carcinoma metastatic [Fatal]
  - Abdominal pain [Unknown]
  - Hyperparathyroidism [Unknown]
  - Insomnia [Unknown]
  - Decreased appetite [Unknown]
  - Depression [Unknown]
  - Abnormal loss of weight [Unknown]
  - Metastases to liver [Fatal]
  - Adenocarcinoma [Unknown]
  - Nausea [Unknown]
